FAERS Safety Report 7992297-6 (Version None)
Quarter: 2011Q4

REPORT INFORMATION
  Report Type: 
  Country: None (occurrence: None)
  Receive Date: 20111219
  Receipt Date: 20110209
  Transmission Date: 20120403
  Serious: No
  Sender: FDA-Public Use
  Company Number: US-ASTRAZENECA-2011SE07997

PATIENT
  Age: 58 Year
  Sex: Female

DRUGS (2)
  1. CRESTOR [Suspect]
     Indication: BLOOD CHOLESTEROL INCREASED
     Route: 048
     Dates: start: 20100101
  2. CRESTOR [Suspect]
     Route: 048
     Dates: start: 20110208

REACTIONS (2)
  - MUSCLE SPASMS [None]
  - DRUG DOSE OMISSION [None]
